FAERS Safety Report 4378714-1 (Version None)
Quarter: 2004Q2

REPORT INFORMATION
  Report Type: 
  Country: None (occurrence: None)
  Receive Date: 20040609
  Receipt Date: 20040526
  Transmission Date: 20050107
  Serious: Yes (Life-Threatening)
  Sender: FDA-Public Use
  Company Number: J200402437

PATIENT
  Age: 73 Year
  Sex: Female

DRUGS (1)
  1. (MYSLEE) ZOLPIDEM TABLET 5MG [Suspect]
     Indication: INSOMNIA
     Dosage: 5MG
     Route: 048
     Dates: start: 20040524, end: 20040525

REACTIONS (2)
  - DEPRESSED LEVEL OF CONSCIOUSNESS [None]
  - RESPIRATORY DEPRESSION [None]
